FAERS Safety Report 9064155 (Version 1)
Quarter: 2013Q1

REPORT INFORMATION
  Report Type: Spontaneous
  Country: US (occurrence: US)
  Receive Date: 20130128
  Receipt Date: 20130128
  Transmission Date: 20140127
  Serious: No
  Sender: FDA-Public Use
  Company Number: US-MYLANLABS-2012S1025263

PATIENT
  Age: 70 Year
  Sex: Male
  Weight: 78.02 kg

DRUGS (1)
  1. CLONIDINE TRANSDERMAL SYSTEM [Suspect]
     Indication: BLOOD PRESSURE INCREASED
     Dosage: CHANGES Q.W.
     Route: 062
     Dates: start: 201211

REACTIONS (1)
  - Anxiety [Not Recovered/Not Resolved]
